FAERS Safety Report 9511550 (Version 1)
Quarter: 2013Q3

REPORT INFORMATION
  Report Type: Spontaneous
  Country: IN (occurrence: None)
  Receive Date: 20130909
  Receipt Date: 20130909
  Transmission Date: 20140515
  Serious: Yes (Other)
  Sender: FDA-Public Use
  Company Number: None

PATIENT
  Age: 70 Year
  Sex: Female
  Weight: 55 kg

DRUGS (1)
  1. CALCIUM CITRATE MALATE 36 GSK [Suspect]
     Indication: OSTEOPOROSIS
     Dosage: 1 PILL FOUR TIMES DAILY TAKEN BY MOUTH
     Route: 048

REACTIONS (2)
  - Local swelling [None]
  - Local swelling [None]
